FAERS Safety Report 6287448-8 (Version None)
Quarter: 2009Q3

REPORT INFORMATION
  Report Type: 
  Country: None (occurrence: None)
  Receive Date: 20090727
  Receipt Date: 20090714
  Transmission Date: 20100115
  Serious: Yes (Death)
  Sender: FDA-Public Use
  Company Number: 1000007120

PATIENT
  Age: 85 Year
  Sex: Female

DRUGS (12)
  1. MEMANTINE HCL [Suspect]
     Indication: DEMENTIA WITH LEWY BODIES
     Dosage: 10 MG (10 MG, 1 IN 1 D), ORAL
     Route: 048
     Dates: start: 20040317
  2. WARFARIN SODIUM [Suspect]
     Indication: CARDIOLIPIN ANTIBODY
     Dosage: ORAL
     Route: 048
  3. ASPIRIN [Suspect]
     Indication: CARDIOLIPIN ANTIBODY
     Dosage: ORAL
     Route: 048
  4. MAGNESIUM (TABLETS) [Concomitant]
  5. LEVODOPA (TABLETS) [Concomitant]
  6. CARBIDOPA (TABLETS) [Concomitant]
  7. CARVEDILOL [Concomitant]
  8. OMEPRAZOLE [Concomitant]
  9. BUMETANIDE [Concomitant]
  10. SERTRALINE [Concomitant]
  11. COLECALCIFEROL [Concomitant]
  12. MELPERONE (TABLETS) [Concomitant]

REACTIONS (5)
  - BLOOD HOMOCYSTEINE INCREASED [None]
  - CEREBRAL HAEMORRHAGE [None]
  - FIBRIN D DIMER INCREASED [None]
  - INTERNATIONAL NORMALISED RATIO DECREASED [None]
  - MYDRIASIS [None]
